FAERS Safety Report 15468853 (Version 1)
Quarter: 2018Q4

REPORT INFORMATION
  Report Type: Spontaneous
  Country: US (occurrence: US)
  Receive Date: 20181005
  Receipt Date: 20181005
  Transmission Date: 20190205
  Serious: Yes (Other)
  Sender: FDA-Public Use
  Company Number: US-GLAXOSMITHKLINE-US2018177206

PATIENT
  Sex: Female

DRUGS (3)
  1. BENLYSTA [Suspect]
     Active Substance: BELIMUMAB
     Indication: PRODUCT USED FOR UNKNOWN INDICATION
     Dosage: 200 MG, WE
     Route: 058
     Dates: start: 201805
  2. AMOXICILLIN. [Concomitant]
     Active Substance: AMOXICILLIN
  3. BENLYSTA [Concomitant]
     Active Substance: BELIMUMAB
     Dosage: UNK
     Dates: start: 201709

REACTIONS (4)
  - Aortic aneurysm repair [Recovered/Resolved]
  - Dental operation [Recovering/Resolving]
  - Pancreatitis [Unknown]
  - Aortic aneurysm rupture [Recovered/Resolved]

NARRATIVE: CASE EVENT DATE: 201807
